FAERS Safety Report 11244703 (Version 4)
Quarter: 2015Q3

REPORT INFORMATION
  Report Type: Spontaneous
  Country: US (occurrence: US)
  Receive Date: 20150707
  Receipt Date: 20150803
  Transmission Date: 20151125
  Serious: Yes (Other)
  Sender: FDA-Public Use
  Company Number: US-PFIZER INC-2015224586

PATIENT
  Age: 84 Year
  Sex: Female
  Weight: 54 kg

DRUGS (3)
  1. SIMBRINZA [Concomitant]
     Active Substance: BRIMONIDINE TARTRATE\BRINZOLAMIDE
     Dosage: UNK
  2. PHOSPHOLINE IODIDE [Suspect]
     Active Substance: ECHOTHIOPHATE IODIDE
     Indication: GLAUCOMA
     Dosage: 1 GTT, 2X/DAY
     Route: 047
     Dates: start: 20150701, end: 20150702
  3. XALATAN [Concomitant]
     Active Substance: LATANOPROST
     Dosage: UNK

REACTIONS (8)
  - Pain [Recovered/Resolved]
  - Headache [Recovered/Resolved]
  - Eye pain [Recovering/Resolving]
  - Eye disorder [Recovered/Resolved]
  - Abdominal discomfort [Unknown]
  - Facial pain [Recovered/Resolved]
  - Malaise [Recovered/Resolved]
  - Vomiting [Recovered/Resolved]

NARRATIVE: CASE EVENT DATE: 201507
